FAERS Safety Report 9001811 (Version 2)
Quarter: 2013Q1

REPORT INFORMATION
  Report Type: Spontaneous
  Country: US (occurrence: US)
  Receive Date: 20130107
  Receipt Date: 20130213
  Transmission Date: 20140127
  Serious: Yes (Hospitalization)
  Sender: FDA-Public Use
  Company Number: US-TEVA-378811USA

PATIENT
  Sex: Male

DRUGS (1)
  1. ACTIQ [Suspect]
     Indication: PAIN
     Dosage: 400-800
     Route: 048

REACTIONS (2)
  - Withdrawal syndrome [Unknown]
  - Off label use [Unknown]
